FAERS Safety Report 4676428-1 (Version None)
Quarter: 2005Q2

REPORT INFORMATION
  Report Type: 
  Country: None (occurrence: None)
  Receive Date: 20050527
  Receipt Date: 20030605
  Transmission Date: 20051028
  Serious: Yes (Hospitalization, Other)
  Sender: FDA-Public Use
  Company Number: US-MERCK-0306USA00771

PATIENT
  Age: 53 Year
  Sex: Female
  Weight: 86 kg

DRUGS (11)
  1. VIOXX [Suspect]
     Indication: ARTHRITIS
     Route: 048
     Dates: start: 20010522, end: 20010810
  2. VIOXX [Suspect]
     Route: 048
  3. ADVIL [Concomitant]
     Route: 048
  4. PREMPRO (PREMARIN;CYCRIN 14/14) [Concomitant]
     Route: 065
  5. PRILOSEC [Concomitant]
     Route: 065
  6. SYNTHROID [Concomitant]
     Route: 065
  7. DIOVAN [Concomitant]
     Route: 065
  8. DIMETHYL SULFONE [Concomitant]
     Route: 065
  9. GAVISCON ANTACID TABLETS [Concomitant]
     Route: 065
  10. HYDROCODONE HYDROCHLORIDE [Concomitant]
     Route: 065
  11. [THERAPY UNSPECIFIED] [Concomitant]
     Route: 048

REACTIONS (61)
  - ACOUSTIC NEUROMA [None]
  - ACUTE SINUSITIS [None]
  - ADVERSE EVENT [None]
  - ALOPECIA SCARRING [None]
  - ANGINA PECTORIS [None]
  - ANTIPHOSPHOLIPID ANTIBODIES POSITIVE [None]
  - ANTIPHOSPHOLIPID SYNDROME [None]
  - ANXIETY [None]
  - ARTHRALGIA [None]
  - ASTHENIA [None]
  - ATELECTASIS [None]
  - BACK DISORDER [None]
  - BALANCE DISORDER [None]
  - BLOOD PRESSURE INCREASED [None]
  - BLOOD THYROID STIMULATING HORMONE DECREASED [None]
  - BRAIN STEM SYNDROME [None]
  - CEREBRAL ARTERY STENOSIS [None]
  - CEREBROVASCULAR ACCIDENT [None]
  - CONVULSION [None]
  - COORDINATION ABNORMAL [None]
  - COW'S MILK INTOLERANCE [None]
  - DEMYELINATION [None]
  - DIABETES MELLITUS NON-INSULIN-DEPENDENT [None]
  - DIARRHOEA [None]
  - DILATATION INTRAHEPATIC DUCT ACQUIRED [None]
  - DIZZINESS [None]
  - DRUG HYPERSENSITIVITY [None]
  - DYSSTASIA [None]
  - EMBOLISM [None]
  - ENCEPHALITIS [None]
  - FATIGUE [None]
  - GAIT DISTURBANCE [None]
  - GASTROOESOPHAGEAL REFLUX DISEASE [None]
  - GLOMUS TUMOUR [None]
  - HAEMORRHAGE [None]
  - HEMIPARESIS [None]
  - HEPATIC LESION [None]
  - HYPOAESTHESIA [None]
  - HYPOTHYROIDISM [None]
  - INNER EAR DISORDER [None]
  - ISCHAEMIA [None]
  - LABYRINTHITIS [None]
  - LYMPHADENOPATHY [None]
  - MENIERE'S DISEASE [None]
  - MOUTH ULCERATION [None]
  - MUSCLE SPASMS [None]
  - MUSCULOSKELETAL STIFFNESS [None]
  - NAUSEA [None]
  - NECK INJURY [None]
  - NYSTAGMUS [None]
  - PARAESTHESIA [None]
  - PLEURAL EFFUSION [None]
  - SENSATION OF HEAVINESS [None]
  - SURGERY [None]
  - TINNITUS [None]
  - TONGUE ULCERATION [None]
  - TRANSIENT ISCHAEMIC ATTACK [None]
  - URTICARIA GENERALISED [None]
  - VASCULITIS [None]
  - VERTIGO [None]
  - VOMITING [None]
